FAERS Safety Report 21931000 (Version 1)
Quarter: 2023Q1

REPORT INFORMATION
  Report Type: Spontaneous
  Country: US (occurrence: None)
  Receive Date: 20230130
  Receipt Date: 20230130
  Transmission Date: 20230417
  Serious: Yes (Hospitalization)
  Sender: FDA-Public Use
  Company Number: None

PATIENT
  Sex: Female
  Weight: 71.67 kg

DRUGS (25)
  1. CAPECITABINE [Suspect]
     Active Substance: CAPECITABINE
     Indication: Hepatocellular carcinoma
     Dosage: 1000MG TWICE DAILY ORAL- 14DAYS ON, 7 D OFF?
     Route: 048
  2. SORAFENIB [Suspect]
     Active Substance: SORAFENIB
     Indication: Hepatocellular carcinoma
     Dosage: 400MG DAILY ORAL?
     Route: 048
  3. ALBUTEROL [Concomitant]
     Active Substance: ALBUTEROL
  4. AMLODIPINE [Concomitant]
     Active Substance: AMLODIPINE BESYLATE
  5. ASPIRIN [Concomitant]
     Active Substance: ASPIRIN
  6. BENADRYL [Concomitant]
     Active Substance: DIPHENHYDRAMINE HYDROCHLORIDE
  7. CLONIDINE [Concomitant]
     Active Substance: CLONIDINE
  8. EMLA [Concomitant]
     Active Substance: LIDOCAINE\PRILOCAINE
  9. HYDRALAZINE [Concomitant]
     Active Substance: HYDRALAZINE HYDROCHLORIDE
  10. HYDROCHLOROTHIAZIDE [Concomitant]
     Active Substance: HYDROCHLOROTHIAZIDE
  11. HYDROCORTISONE [Concomitant]
     Active Substance: HYDROCORTISONE
  12. LATANOPROST [Concomitant]
     Active Substance: LATANOPROST
  13. LEVOTHYROXINE [Concomitant]
     Active Substance: LEVOTHYROXINE
  14. LOPERAMIDE [Concomitant]
     Active Substance: LOPERAMIDE
  15. LOSARTAN [Concomitant]
     Active Substance: LOSARTAN
  16. MECLIZINE [Concomitant]
     Active Substance: MECLIZINE HYDROCHLORIDE
  17. MEGESTROL [Concomitant]
     Active Substance: MEGESTROL
  18. METOPROLOL [Concomitant]
     Active Substance: METOPROLOL
  19. NEXAVAR [Concomitant]
     Active Substance: SORAFENIB
  20. PROAIR HFA [Concomitant]
     Active Substance: ALBUTEROL SULFATE
  21. SIMVASTATIN [Concomitant]
     Active Substance: SIMVASTATIN
  22. FERROUS SULFATE [Concomitant]
     Active Substance: FERROUS SULFATE
  23. VITAMIN D2 [Concomitant]
     Active Substance: ERGOCALCIFEROL
  24. WIXELA INHUB [Concomitant]
     Active Substance: FLUTICASONE PROPIONATE\SALMETEROL XINAFOATE
  25. ZOFRAN [Concomitant]
     Active Substance: ONDANSETRON HYDROCHLORIDE

REACTIONS (2)
  - Gastrointestinal disorder [None]
  - Muscle spasms [None]
